FAERS Safety Report 6551579-5 (Version None)
Quarter: 2010Q1

REPORT INFORMATION
  Report Type: 
  Country: None (occurrence: None)
  Receive Date: 20100126
  Receipt Date: 20100118
  Transmission Date: 20100710
  Serious: No
  Sender: FDA-Public Use
  Company Number: US-B.I. PHARMACEUTICALS,INC./RIDGEFIELD-2010-BP-00601BP

PATIENT
  Age: 67 Year
  Sex: Female

DRUGS (3)
  1. ZANTAC 150 [Suspect]
     Indication: GASTROOESOPHAGEAL REFLUX DISEASE
     Route: 048
     Dates: start: 20100101
  2. SYNTHROID [Concomitant]
     Dates: start: 20030101
  3. ERT [Concomitant]
     Indication: HORMONE REPLACEMENT THERAPY

REACTIONS (1)
  - FAECES DISCOLOURED [None]
